FAERS Safety Report 17350114 (Version 5)
Quarter: 2020Q3

REPORT INFORMATION
  Report Type: Report from Study
  Country: US (occurrence: US)
  Receive Date: 20200130
  Receipt Date: 20200820
  Transmission Date: 20201102
  Serious: No
  Sender: FDA-Public Use
  Company Number: NVSC2019US046544

PATIENT
  Age: 82 Year
  Sex: Male

DRUGS (6)
  1. BEOVU [Suspect]
     Active Substance: BROLUCIZUMAB-DBLL
     Dosage: UNK
     Route: 047
     Dates: start: 20200110
  2. KEPPRA [Concomitant]
     Active Substance: LEVETIRACETAM
     Indication: SEIZURE
     Dosage: UNK
     Route: 065
  3. KEPPRA [Concomitant]
     Active Substance: LEVETIRACETAM
     Dosage: UNK (EXTRA 1/2 OF A PILL AFTER BEOVU)
     Route: 065
  4. BEOVU [Suspect]
     Active Substance: BROLUCIZUMAB-DBLL
     Dosage: UNK
     Route: 047
  5. BEOVU [Suspect]
     Active Substance: BROLUCIZUMAB-DBLL
     Route: 047
     Dates: start: 20191104
  6. BEOVU [Suspect]
     Active Substance: BROLUCIZUMAB-DBLL
     Indication: NEOVASCULAR AGE-RELATED MACULAR DEGENERATION
     Dosage: UNK, QMO
     Route: 047
     Dates: start: 20191104

REACTIONS (7)
  - Dry eye [Unknown]
  - Visual impairment [Unknown]
  - Eye irritation [Unknown]
  - Feeling abnormal [Recovering/Resolving]
  - Drug ineffective [Unknown]
  - Head discomfort [Recovering/Resolving]
  - Sensation of blood flow [Recovering/Resolving]

NARRATIVE: CASE EVENT DATE: 20191105
